FAERS Safety Report 9196652 (Version 1)
Quarter: 2013Q1

REPORT INFORMATION
  Report Type: Report from Study
  Country: GR (occurrence: GR)
  Receive Date: 20130328
  Receipt Date: 20130328
  Transmission Date: 20140127
  Serious: Yes (Hospitalization)
  Sender: FDA-Public Use
  Company Number: GR-SANOFI-AVENTIS-2013SA026337

PATIENT
  Age: 59 Year
  Sex: Male
  Weight: 78 kg

DRUGS (11)
  1. DOCETAXEL [Suspect]
     Indication: NON-SMALL CELL LUNG CANCER STAGE IV
     Route: 041
     Dates: start: 20121016, end: 20121016
  2. DOCETAXEL [Suspect]
     Indication: NON-SMALL CELL LUNG CANCER STAGE IV
     Route: 041
     Dates: start: 20130219, end: 20130219
  3. BLINDED THERAPY [Suspect]
     Dates: start: 20121016, end: 20121016
  4. BLINDED THERAPY [Suspect]
     Dates: start: 20130219, end: 20130219
  5. LENOGRASTIM [Concomitant]
     Route: 065
     Dates: start: 20130226, end: 20130302
  6. FAMOTAL [Concomitant]
  7. APOTEL [Concomitant]
  8. RANITIDINE HYDROCHLORIDE [Concomitant]
  9. ZOFRAN [Concomitant]
  10. DEXAMETHASONE [Concomitant]
  11. FENISTIL [Concomitant]
     Route: 065

REACTIONS (3)
  - Pneumothorax [Recovering/Resolving]
  - Fatigue [Recovering/Resolving]
  - Pleural effusion [Recovered/Resolved]
